FAERS Safety Report 9338559 (Version 1)
Quarter: 2013Q2

REPORT INFORMATION
  Report Type: Spontaneous
  Country: US (occurrence: None)
  Receive Date: 20130605
  Receipt Date: 20130605
  Transmission Date: 20140414
  Serious: No
  Sender: FDA-Public Use
  Company Number: None

PATIENT
  Age: 43 Year
  Sex: Male

DRUGS (1)
  1. STIVARGA [Suspect]
     Dosage: 160MG, QD X21 D, PO
     Route: 048

REACTIONS (3)
  - Nausea [None]
  - Fatigue [None]
  - Abdominal pain [None]
